FAERS Safety Report 8666378 (Version 2)
Quarter: 2013Q4

REPORT INFORMATION
  Report Type: Spontaneous
  Country: CA (occurrence: CA)
  Receive Date: 20120716
  Receipt Date: 20131106
  Transmission Date: 20140711
  Serious: Yes (Death)
  Sender: FDA-Public Use
  Company Number: CA-009507513-1207CAN004202

PATIENT
  Age: 60 Year
  Sex: Male

DRUGS (1)
  1. TEMODAL [Suspect]
     Indication: GLIOBLASTOMA
     Dosage: 125 MG, UNK
     Route: 048
     Dates: start: 201204, end: 201206

REACTIONS (1)
  - Death [Fatal]
